FAERS Safety Report 7646948-6 (Version None)
Quarter: 2011Q3

REPORT INFORMATION
  Report Type: 
  Country: None (occurrence: None)
  Receive Date: 20110801
  Receipt Date: 20110721
  Transmission Date: 20111222
  Serious: Yes (Life-Threatening, Hospitalization, Other)
  Sender: FDA-Public Use
  Company Number: US-BAYER-2011-014061

PATIENT
  Age: 17 Year
  Sex: Female
  Weight: 65.8 kg

DRUGS (9)
  1. YAZ [Suspect]
     Dosage: UNK, QD
     Route: 048
     Dates: start: 20090801, end: 20090901
  2. ADVAIR DISKUS 100/50 [Concomitant]
     Dosage: 1 PUFF(S), PRN
  3. YAZ [Suspect]
     Indication: CONTRACEPTION
     Dosage: UNK
     Route: 048
     Dates: start: 20070101, end: 20080101
  4. YASMIN [Suspect]
     Dosage: UNK, QD
     Route: 048
     Dates: start: 20090801, end: 20090901
  5. YASMIN [Suspect]
     Dosage: UNK
  6. BENTOLYN [Concomitant]
     Dosage: UNK UNK, PRN
     Route: 048
  7. YASMIN [Suspect]
     Indication: CONTRACEPTION
     Dosage: UNK UNK, QD
     Route: 048
     Dates: start: 20070101, end: 20080101
  8. BACLOFEN [Concomitant]
  9. ALBUTEROL SULFATE AUTOHALER [Concomitant]
     Dosage: 1 PUFF(S), PRN

REACTIONS (3)
  - BILIARY COLIC [None]
  - ABDOMINAL PAIN [None]
  - BILIARY DYSKINESIA [None]
